FAERS Safety Report 9774218 (Version 1)
Quarter: 2013Q4

REPORT INFORMATION
  Report Type: Other
  Country: US (occurrence: US)
  Receive Date: 20131220
  Receipt Date: 20131220
  Transmission Date: 20140711
  Serious: Yes (Hospitalization)
  Sender: FDA-Public Use
  Company Number: US-SHIRE-ALL1-2013-08832

PATIENT
  Age: 9 Year
  Sex: Female
  Weight: 22.68 kg

DRUGS (5)
  1. INTUNIV [Suspect]
     Indication: ATTENTION DEFICIT/HYPERACTIVITY DISORDER
     Dosage: 4 MG, 1X/DAY:QD
     Route: 048
     Dates: end: 201306
  2. INTUNIV [Suspect]
     Dosage: 1 MG, UNKNOWN
     Route: 048
  3. INTUNIV [Suspect]
     Dosage: 2 MG, UNKNOWN
     Route: 048
     Dates: start: 201307, end: 201307
  4. INTUNIV [Suspect]
     Dosage: 2 MG, 2X/DAY:BID
     Route: 048
     Dates: start: 201307, end: 201311
  5. INTUNIV [Suspect]
     Dosage: UNK UNK (1/2 OF A 4 MG), 1X/DAY:QD
     Route: 048
     Dates: start: 201312

REACTIONS (6)
  - Vomiting [Recovered/Resolved]
  - Blood pressure increased [Recovered/Resolved]
  - Inappropriate schedule of drug administration [Recovered/Resolved]
  - Drug prescribing error [Recovered/Resolved]
  - Wrong technique in drug usage process [Not Recovered/Not Resolved]
  - Incorrect dose administered [Not Recovered/Not Resolved]
